FAERS Safety Report 20855285 (Version 2)
Quarter: 2022Q2

REPORT INFORMATION
  Report Type: Report from Study
  Country: US (occurrence: US)
  Receive Date: 20220520
  Receipt Date: 20220525
  Transmission Date: 20220721
  Serious: Yes (Death)
  Sender: FDA-Public Use
  Company Number: US-KARYOPHARM-2022KPT000571

PATIENT
  Age: 72 Year
  Sex: Male
  Weight: 140 kg

DRUGS (1)
  1. SELINEXOR [Suspect]
     Active Substance: SELINEXOR
     Indication: Acute myeloid leukaemia
     Dosage: 60 MG
     Route: 048
     Dates: start: 20191121

REACTIONS (3)
  - Febrile neutropenia [Fatal]
  - Septic shock [Fatal]
  - Respiratory failure [Fatal]

NARRATIVE: CASE EVENT DATE: 20191203
